FAERS Safety Report 4871803-4 (Version None)
Quarter: 2006Q1

REPORT INFORMATION
  Report Type: 
  Country: None (occurrence: None)
  Receive Date: 20060104
  Receipt Date: 20051215
  Transmission Date: 20060701
  Serious: Yes (Life-Threatening)
  Sender: FDA-Public Use
  Company Number: JP-JPN-A20053096

PATIENT
  Age: 71 Year
  Sex: Female
  Weight: 36 kg

DRUGS (6)
  1. VALTREX [Suspect]
     Indication: HERPES ZOSTER
     Route: 048
  2. THYRADIN [Concomitant]
     Dosage: 75MCG PER DAY
     Route: 048
  3. LASIX [Concomitant]
     Dosage: 40MG PER DAY
     Route: 048
  4. YODEL S [Concomitant]
     Dosage: 160MG PER DAY
     Route: 048
  5. TAKEPRON [Concomitant]
     Dosage: 15MG PER DAY
     Route: 048
  6. CALTAN [Concomitant]
     Dosage: 6TAB PER DAY
     Route: 048

REACTIONS (7)
  - BLOOD PRESSURE DECREASED [None]
  - DECREASED APPETITE [None]
  - DEPRESSED LEVEL OF CONSCIOUSNESS [None]
  - DYSARTHRIA [None]
  - GAIT DISTURBANCE [None]
  - MOVEMENT DISORDER [None]
  - VISUAL ACUITY REDUCED [None]
